FAERS Safety Report 13416248 (Version 1)
Quarter: 2017Q2

REPORT INFORMATION
  Report Type: Spontaneous
  Country: NO (occurrence: NO)
  Receive Date: 20170406
  Receipt Date: 20170406
  Transmission Date: 20170830
  Serious: Yes (Other)
  Sender: FDA-Public Use
  Company Number: NO-ASTRAZENECA-2017SE33048

PATIENT
  Sex: Female

DRUGS (3)
  1. QUETIAPINE FUMARATE. [Suspect]
     Active Substance: QUETIAPINE FUMARATE
     Dosage: UNK
     Route: 064
  2. CLOMIPRAMINE [Suspect]
     Active Substance: CLOMIPRAMINE
     Dosage: UNK
     Route: 064
  3. LITHIUM. [Suspect]
     Active Substance: LITHIUM
     Dosage: UNK
     Route: 064

REACTIONS (2)
  - Ammonia increased [Recovered/Resolved]
  - Drug withdrawal syndrome neonatal [Unknown]
